FAERS Safety Report 14337820 (Version 2)
Quarter: 2018Q1

REPORT INFORMATION
  Report Type: Report from Study
  Country: US (occurrence: US)
  Receive Date: 20171229
  Receipt Date: 20180119
  Transmission Date: 20180509
  Serious: Yes (Hospitalization)
  Sender: FDA-Public Use
  Company Number: US-PFIZER INC-2017547253

PATIENT
  Age: 66 Year
  Sex: Female
  Weight: 72.6 kg

DRUGS (11)
  1. CARBOPLATIN. [Suspect]
     Active Substance: CARBOPLATIN
     Indication: OVARIAN CANCER
     Dosage: 624.6 MG, (1 ML/10MG, REGIMEN Q3W)
     Route: 042
     Dates: start: 20170917
  2. PROCHLORPERAZINE. [Concomitant]
     Active Substance: PROCHLORPERAZINE
     Indication: NAUSEA
     Dosage: UNK
     Route: 048
     Dates: start: 20171024
  3. AMOXICILLIN. [Concomitant]
     Active Substance: AMOXICILLIN
     Indication: POST PROCEDURAL CELLULITIS
     Dosage: UNK
     Route: 048
     Dates: start: 20171218
  4. CLINDAMYCIN. [Concomitant]
     Active Substance: CLINDAMYCIN
     Indication: POST PROCEDURAL CELLULITIS
     Dosage: UNK
     Route: 048
     Dates: start: 20171202, end: 20171218
  5. ZOFRAN [Concomitant]
     Active Substance: ONDANSETRON HYDROCHLORIDE
     Indication: NAUSEA
     Dosage: UNK
     Route: 048
     Dates: start: 20170817
  6. AVELUMAB [Suspect]
     Active Substance: AVELUMAB
     Indication: OVARIAN CANCER
     Dosage: 770 MG (10 MG/KG), REGIMEN Q3W
     Route: 042
     Dates: start: 20170917
  7. DOXYCYCLINE. [Concomitant]
     Active Substance: DOXYCYCLINE
     Indication: POST PROCEDURAL CELLULITIS
     Dosage: UNK
     Route: 048
     Dates: start: 20171218, end: 20171219
  8. AMLODIPINE [Concomitant]
     Active Substance: AMLODIPINE BESYLATE
     Indication: HYPERTENSION
     Dosage: UNK
     Route: 048
     Dates: start: 20171006
  9. PACLITAXEL. [Suspect]
     Active Substance: PACLITAXEL
     Indication: OVARIAN CANCER
     Dosage: 117 MG, (60 MG/M2, REGIMEN QW)
     Route: 042
     Dates: start: 20170917
  10. BACTRIM [Concomitant]
     Active Substance: SULFAMETHOXAZOLE\TRIMETHOPRIM
     Indication: POST PROCEDURAL CELLULITIS
     Dosage: UNK
     Route: 048
     Dates: start: 20171219
  11. COLACE [Concomitant]
     Active Substance: DOCUSATE SODIUM
     Indication: CONSTIPATION
     Dosage: UNK
     Route: 048
     Dates: start: 20170817

REACTIONS (1)
  - Hypokalaemia [Recovered/Resolved]

NARRATIVE: CASE EVENT DATE: 20171219
